FAERS Safety Report 4984460-3 (Version None)
Quarter: 2006Q2

REPORT INFORMATION
  Report Type: 
  Country: None (occurrence: None)
  Receive Date: 20060427
  Receipt Date: 20060406
  Transmission Date: 20061013
  Serious: Yes (Other)
  Sender: FDA-Public Use
  Company Number: JP-JPN-A200601164

PATIENT
  Age: 64 Year
  Sex: Female

DRUGS (3)
  1. ZANTAC [Suspect]
     Indication: ULCER
     Dosage: 150MG TWICE PER DAY
     Route: 048
     Dates: start: 20051221, end: 20060213
  2. ZANTAC [Suspect]
     Indication: NEOPLASM MALIGNANT
     Dosage: 75MG TWICE PER DAY
     Route: 048
     Dates: start: 20060209, end: 20060214
  3. UNKNOWN DRUG [Concomitant]
     Route: 065

REACTIONS (4)
  - DYSGRAPHIA [None]
  - FEELING ABNORMAL [None]
  - OEDEMA [None]
  - PARAESTHESIA [None]
